FAERS Safety Report 15577662 (Version 6)
Quarter: 2020Q4

REPORT INFORMATION
  Report Type: Spontaneous
  Country: JP (occurrence: JP)
  Receive Date: 20181102
  Receipt Date: 20201007
  Transmission Date: 20210113
  Serious: Yes (Hospitalization, Other)
  Sender: FDA-Public Use
  Company Number: JP-ASTRAZENECA-2018SF42194

PATIENT
  Age: 86 Year
  Sex: Male
  Weight: 65 kg

DRUGS (15)
  1. LOSARTAN POTASSIUM. [Concomitant]
     Active Substance: LOSARTAN POTASSIUM
     Route: 048
     Dates: end: 2017
  2. LEVODOPA/CARBIDOPA HYDRATE [Concomitant]
     Active Substance: CARBIDOPA\LEVODOPA
     Dosage: NUMBER OF SEPARATE DOSAGES UNKNOWN
     Route: 065
  3. FORXIGA [Suspect]
     Active Substance: DAPAGLIFLOZIN
     Indication: TYPE 2 DIABETES MELLITUS
     Route: 048
     Dates: end: 20170508
  4. REPAGLINIDE. [Interacting]
     Active Substance: REPAGLINIDE
     Indication: TYPE 2 DIABETES MELLITUS
     Dosage: NUMBER OF SEPARATE DOSAGES UNKNOWN
     Route: 048
     Dates: end: 2017
  5. FP [Interacting]
     Active Substance: SELEGILINE HYDROCHLORIDE
     Dosage: NUMBER OF SEPARATE DOSAGES UNKNOWN
     Route: 048
     Dates: end: 2017
  6. NIFEDIPINE. [Concomitant]
     Active Substance: NIFEDIPINE
     Route: 048
     Dates: end: 2017
  7. REMINYL [Concomitant]
     Active Substance: GALANTAMINE
     Dosage: 18 MG NUMBER OF SEPARATE DOSAGES UNKNOWN
     Route: 065
     Dates: end: 2017
  8. CALONAL [Concomitant]
     Active Substance: ACETAMINOPHEN
     Route: 048
     Dates: end: 2017
  9. NEODOPASTON [Concomitant]
     Active Substance: CARBIDOPA\LEVODOPA
     Route: 048
     Dates: end: 2017
  10. SENNOSIDE [Concomitant]
     Active Substance: SENNOSIDES
     Route: 048
     Dates: end: 2017
  11. AMITIZA [Concomitant]
     Active Substance: LUBIPROSTONE
     Route: 065
     Dates: end: 2017
  12. TALION [Concomitant]
     Route: 065
     Dates: end: 2017
  13. REQUIP [Concomitant]
     Active Substance: ROPINIROLE HYDROCHLORIDE
     Route: 048
     Dates: end: 2017
  14. LEVODOPA [Concomitant]
     Active Substance: LEVODOPA
     Dosage: NUMBER OF SEPARATE DOSAGES UNKNOWN
     Route: 065
  15. SAWACILLIN [Concomitant]
     Active Substance: AMOXICILLIN
     Route: 048

REACTIONS (6)
  - Lacunar infarction [Recovered/Resolved]
  - Hypoglycaemia [Recovered/Resolved]
  - Pneumonia [Recovered/Resolved]
  - Atrioventricular block complete [Recovered/Resolved]
  - Drug interaction [Unknown]
  - Nasopharyngitis [Unknown]

NARRATIVE: CASE EVENT DATE: 20170508
